FAERS Safety Report 10986083 (Version 1)
Quarter: 2015Q2

REPORT INFORMATION
  Report Type: Spontaneous
  Country: US (occurrence: None)
  Receive Date: 20150403
  Receipt Date: 20150403
  Transmission Date: 20150821
  Serious: Yes (Disabling)
  Sender: FDA-Public Use
  Company Number: None

PATIENT
  Age: 83 Year
  Sex: Female
  Weight: 60.78 kg

DRUGS (9)
  1. FENTANYL. [Concomitant]
     Active Substance: FENTANYL
  2. HYDROCODONE [Concomitant]
     Active Substance: HYDROCODONE
  3. METOPROLOL [Concomitant]
     Active Substance: METOPROLOL
  4. IRON [Concomitant]
     Active Substance: IRON
  5. HYDROCODONE [Suspect]
     Active Substance: HYDROCODONE
     Dosage: 1 PILL TWICE DAILY TAKEN BY MOUTH
     Route: 048
  6. SYNTHROID [Concomitant]
     Active Substance: LEVOTHYROXINE SODIUM
  7. VITAMIN D [Concomitant]
     Active Substance: CHOLECALCIFEROL
  8. GABAPENTIN. [Concomitant]
     Active Substance: GABAPENTIN
  9. PACEMAKER [Concomitant]

REACTIONS (4)
  - Inadequate analgesia [None]
  - Product quality issue [None]
  - Product coating issue [None]
  - Product substitution issue [None]

NARRATIVE: CASE EVENT DATE: 20150318
